FAERS Safety Report 22185042 (Version 3)
Quarter: 2023Q4

REPORT INFORMATION
  Report Type: Spontaneous
  Country: US (occurrence: US)
  Receive Date: 20230407
  Receipt Date: 20231005
  Transmission Date: 20240110
  Serious: Yes (Other)
  Sender: FDA-Public Use
  Company Number: US-BRISTOL-MYERS SQUIBB COMPANY-2023-049184

PATIENT
  Age: 82 Year
  Sex: Female

DRUGS (1)
  1. LENALIDOMIDE [Suspect]
     Active Substance: LENALIDOMIDE
     Indication: Plasma cell myeloma
     Dosage: TAKE 1 CAPSULE (5MG) BY MOUTH EVERY DAY FOR 21 DAYS, FOLLOWED BY 7 DAYS OFF FOR A 28 DAY CYCLE
     Route: 048
     Dates: start: 20221102

REACTIONS (4)
  - Faeces soft [Not Recovered/Not Resolved]
  - White blood cell count decreased [Recovering/Resolving]
  - Platelet count decreased [Recovering/Resolving]
  - Fatigue [Unknown]
